FAERS Safety Report 8585743-0 (Version None)
Quarter: 2012Q3

REPORT INFORMATION
  Report Type: 
  Country: None (occurrence: None)
  Receive Date: 20120810
  Receipt Date: 20120726
  Transmission Date: 20120928
  Serious: Yes (Other)
  Sender: FDA-Public Use
  Company Number: US-009507513-1207USA012056

PATIENT

DRUGS (3)
  1. VICTRELIS [Suspect]
     Dosage: 4 DF, UNK
     Route: 048
  2. REBETOL [Suspect]
     Dosage: 2 DF AM AND 3 DF PM
  3. PEGASYS [Suspect]

REACTIONS (7)
  - CHEST DISCOMFORT [None]
  - RENAL PAIN [None]
  - ANAEMIA [None]
  - ASTHENIA [None]
  - MALAISE [None]
  - BLOOD PRESSURE INCREASED [None]
  - DIZZINESS [None]
